FAERS Safety Report 16167122 (Version 2)
Quarter: 2019Q2

REPORT INFORMATION
  Report Type: Spontaneous
  Country: US (occurrence: US)
  Receive Date: 20190408
  Receipt Date: 20190411
  Transmission Date: 20190711
  Serious: Yes (Other)
  Sender: FDA-Public Use
  Company Number: US-CIPLA LTD.-2019US01771

PATIENT

DRUGS (24)
  1. IRINOTECAN [Suspect]
     Active Substance: IRINOTECAN
     Dosage: 110 MILLIGRAM/SQ. METER (ZFOLFIRI, LAST CYCLE)
     Route: 065
  2. 5-FLUOROURACIL                     /00098801/ [Suspect]
     Active Substance: FLUOROURACIL
     Dosage: UNK, 8 MONTHS (FOLFIRI)
     Route: 065
  3. LEUCOVORIN                         /00566701/ [Suspect]
     Active Substance: LEUCOVORIN
     Indication: RECTAL CANCER METASTATIC
     Dosage: UNK, 5 MONTHS (FOLFOX)
     Route: 065
  4. BEVACIZUMAB. [Suspect]
     Active Substance: BEVACIZUMAB
     Indication: RECTAL CANCER METASTATIC
     Dosage: UNK (FOLFOX), 5 MONTHS
     Route: 065
  5. IRINOTECAN [Suspect]
     Active Substance: IRINOTECAN
     Dosage: UNK, 5 MONTHS (FOLFIRI)
     Route: 065
  6. LEUCOVORIN                         /00566701/ [Suspect]
     Active Substance: LEUCOVORIN
     Dosage: UNK, ZFOLFIRI (27 CYCLES)
     Route: 065
  7. BEVACIZUMAB. [Suspect]
     Active Substance: BEVACIZUMAB
     Dosage: UNK (FOLFIRI), 5 MONTHS
     Route: 065
  8. ZIV-AFLIBERCEPT [Suspect]
     Active Substance: ZIV-AFLIBERCEPT
     Indication: RENAL CANCER METASTATIC
     Dosage: 4 MILLIGRAM/KILOGRAM (ZFOLFRI, CYCLE 1)
     Route: 065
  9. IRINOTECAN [Suspect]
     Active Substance: IRINOTECAN
     Dosage: UNK, 25 CYCLES (ZFOLFIRI)
     Route: 065
  10. ZIV-AFLIBERCEPT [Suspect]
     Active Substance: ZIV-AFLIBERCEPT
     Dosage: 4 MILLIGRAM/KILOGRAM (ZFOLFRI, CYCLE 27)
     Route: 065
  11. 5-FLUOROURACIL                     /00098801/ [Suspect]
     Active Substance: FLUOROURACIL
     Dosage: UNK, MAINTENANCE FOR 5 MONTHS
     Route: 065
  12. OXALIPLATIN. [Suspect]
     Active Substance: OXALIPLATIN
     Indication: RECTAL CANCER METASTATIC
     Dosage: UNK, 5 MONTHS (FOLFOX)
     Route: 065
  13. IRINOTECAN [Suspect]
     Active Substance: IRINOTECAN
     Indication: RECTAL CANCER METASTATIC
     Dosage: UNK, 8 MONTHS (FOLFIRI)
     Route: 065
  14. 5-FLUOROURACIL                     /00098801/ [Suspect]
     Active Substance: FLUOROURACIL
     Indication: RECTAL CANCER METASTATIC
     Dosage: UNK, 5 MONTHS (FOLFOX)
     Route: 065
  15. 5-FLUOROURACIL                     /00098801/ [Suspect]
     Active Substance: FLUOROURACIL
     Dosage: UNK (CYCLES 25)
     Route: 065
  16. CETUXIMAB. [Suspect]
     Active Substance: CETUXIMAB
     Indication: RECTAL CANCER METASTATIC
     Dosage: UNK, 8 MONTHS (FOLFIRI)
     Route: 065
  17. CAPECITABINE. [Suspect]
     Active Substance: CAPECITABINE
     Indication: RECTAL CANCER METASTATIC
     Dosage: UNK, MAINTENANCE, 5 MONTHS
     Route: 065
  18. 5-FLUOROURACIL                     /00098801/ [Suspect]
     Active Substance: FLUOROURACIL
     Dosage: 2400 MILLIGRAM/SQ. METER (ZFOLFIRI, CYCLE 1)
     Route: 065
  19. 5-FLUOROURACIL                     /00098801/ [Suspect]
     Active Substance: FLUOROURACIL
     Dosage: 1500 MILLIGRAM/SQ. METER (ZFOLFIRI, CYCLE 27)
     Route: 065
  20. ZIV-AFLIBERCEPT [Suspect]
     Active Substance: ZIV-AFLIBERCEPT
     Dosage: UNK (ZFOLFRI, CYCLES 25)
     Route: 065
  21. IRINOTECAN [Suspect]
     Active Substance: IRINOTECAN
     Dosage: 180 MILLIGRAM/SQ. METER (ZFOLFIRI, CYCLE 1)
     Route: 065
  22. 5-FLUOROURACIL                     /00098801/ [Suspect]
     Active Substance: FLUOROURACIL
     Dosage: UNK, 5 MONTHS (FOLFOX)
     Route: 065
  23. LEUCOVORIN                         /00566701/ [Suspect]
     Active Substance: LEUCOVORIN
     Dosage: UNK, 8 MONTHS (FOLFIRI)
     Route: 065
  24. LEUCOVORIN                         /00566701/ [Suspect]
     Active Substance: LEUCOVORIN
     Dosage: UNK, 5 MONTHS (FOLFIRI)
     Route: 065

REACTIONS (4)
  - Metastases to liver [Unknown]
  - Neutropenic sepsis [Unknown]
  - Pneumonia [Unknown]
  - Malignant neoplasm progression [Unknown]
